FAERS Safety Report 6099397-9 (Version None)
Quarter: 2009Q1

REPORT INFORMATION
  Report Type: 
  Country: None (occurrence: None)
  Receive Date: 20090303
  Receipt Date: 20090220
  Transmission Date: 20090719
  Serious: Yes (Other)
  Sender: FDA-Public Use
  Company Number: NL-JNJFOC-20090206089

PATIENT
  Sex: Female

DRUGS (5)
  1. REMICADE [Suspect]
     Route: 042
  2. REMICADE [Suspect]
     Dosage: ALSO REPORED AS 27-JAN-2009
     Route: 042
  3. REMICADE [Suspect]
     Indication: CROHN'S DISEASE
     Dosage: 3 INFUSIONS
     Route: 042
  4. PREDNISOLONE [Concomitant]
  5. ENTOCORD [Concomitant]

REACTIONS (8)
  - BACK PAIN [None]
  - CHILLS [None]
  - ERYTHEMA [None]
  - GASTROINTESTINAL INFLAMMATION [None]
  - HAEMORRHAGE [None]
  - HEADACHE [None]
  - HYPERTENSION [None]
  - PULMONARY FIBROSIS [None]
